FAERS Safety Report 11940022 (Version 1)
Quarter: 2016Q1

REPORT INFORMATION
  Report Type: Spontaneous
  Country: FR (occurrence: FR)
  Receive Date: 20160122
  Receipt Date: 20160122
  Transmission Date: 20160526
  Serious: Yes (Other)
  Sender: FDA-Public Use
  Company Number: FR-PFIZER INC-2016026303

PATIENT
  Age: 75 Year
  Sex: Female

DRUGS (7)
  1. DALACINE [Suspect]
     Active Substance: CLINDAMYCIN HYDROCHLORIDE
     Indication: OSTEITIS
     Dosage: 300 MG, 6X/DAY
     Route: 048
     Dates: start: 20151101, end: 20151204
  2. TANGANIL /01593101/ [Concomitant]
  3. DAFALGAN [Concomitant]
     Active Substance: ACETAMINOPHEN
  4. FUCIDINE [Suspect]
     Active Substance: FUSIDIC ACID
     Indication: OSTEITIS
     Dosage: 250 MG, 6X/DAY
     Route: 048
     Dates: start: 20151101, end: 20151204
  5. NISISCO [Concomitant]
     Active Substance: HYDROCHLOROTHIAZIDE\VALSARTAN
  6. PREVISCAN /00789001/ [Concomitant]
     Active Substance: FLUINDIONE
  7. LAMALINE [Concomitant]
     Active Substance: ACETAMINOPHEN\CAFFEINE\OPIUM

REACTIONS (3)
  - Hepatic failure [Recovered/Resolved]
  - Blood creatine phosphokinase increased [Recovered/Resolved]
  - Acute kidney injury [Recovered/Resolved]

NARRATIVE: CASE EVENT DATE: 20151204
